FAERS Safety Report 8432760-7 (Version None)
Quarter: 2012Q2

REPORT INFORMATION
  Report Type: 
  Country: None (occurrence: None)
  Receive Date: 20120613
  Receipt Date: 20120607
  Transmission Date: 20120825
  Serious: Yes (Hospitalization)
  Sender: FDA-Public Use
  Company Number: JO-ABBOTT-12P-088-0928075-00

PATIENT
  Sex: Female
  Weight: 57 kg

DRUGS (5)
  1. HUMIRA [Suspect]
     Dates: end: 20120405
  2. TAGRETOL [Concomitant]
     Dosage: 400 MG/DAY
     Dates: start: 20120414
  3. HUMIRA [Suspect]
     Indication: CROHN'S DISEASE
     Dosage: STARTING DOSE
     Route: 058
     Dates: start: 20100601, end: 20120405
  4. HUMIRA [Suspect]
     Route: 058
  5. PENTAZA [Concomitant]
     Indication: CROHN'S DISEASE
     Route: 048

REACTIONS (5)
  - HYPOAESTHESIA [None]
  - EYE PAIN [None]
  - BRAIN MASS [None]
  - PARAESTHESIA [None]
  - ABDOMINAL PAIN [None]
